FAERS Safety Report 21179278 (Version 1)
Quarter: 2022Q3

REPORT INFORMATION
  Report Type: Spontaneous
  Country: FR (occurrence: FR)
  Receive Date: 20220805
  Receipt Date: 20220805
  Transmission Date: 20221027
  Serious: Yes (Other)
  Sender: FDA-Public Use
  Company Number: FR-PFIZER INC-PV202200037104

PATIENT
  Age: 66 Year
  Sex: Male

DRUGS (1)
  1. AXITINIB [Suspect]
     Active Substance: AXITINIB
     Indication: Renal cell carcinoma recurrent
     Dosage: UNK, CYCLIC

REACTIONS (1)
  - Osteonecrosis of jaw [Unknown]
